FAERS Safety Report 10986543 (Version 1)
Quarter: 2015Q2

REPORT INFORMATION
  Report Type: Spontaneous
  Country: JP (occurrence: None)
  Receive Date: 20150402
  Receipt Date: 20150402
  Transmission Date: 20150821
  Serious: Yes (Hospitalization, Other)
  Sender: FDA-Public Use
  Company Number: 2010JP001935

PATIENT
  Age: 36 Year
  Sex: Female
  Weight: 88 kg

DRUGS (10)
  1. MYCOSPOR (BIFONAZOLE) [Concomitant]
  2. PROGRAF [Suspect]
     Active Substance: TACROLIMUS\TACROLIMUS ANHYDROUS
     Indication: LUPUS NEPHRITIS
     Dosage: 3 MG, ONCE DAILY, ORAL
     Route: 048
     Dates: start: 20080220, end: 20111006
  3. ENDOXAN (CYCLOPHOSPHAMIDE HYDRATE) [Concomitant]
  4. LOXONIN (LOXOPROFEN) [Concomitant]
  5. PREDNISOLONE. [Concomitant]
     Active Substance: PREDNISOLONE
  6. MOBIC [Concomitant]
     Active Substance: MELOXICAM
  7. VOLTAREN [Concomitant]
     Active Substance: DICLOFENAC SODIUM
  8. BONALON [Concomitant]
     Active Substance: ALENDRONATE SODIUM
  9. MUCOSTA (REBAMIPIDE) [Concomitant]
  10. NU-LOTAN (LOSARTAN POTASSIUM) [Concomitant]

REACTIONS (3)
  - Neuropathy peripheral [None]
  - Systemic lupus erythematosus [None]
  - Arthralgia [None]

NARRATIVE: CASE EVENT DATE: 20090930
